FAERS Safety Report 9861390 (Version 1)
Quarter: 2014Q1

REPORT INFORMATION
  Report Type: Spontaneous
  Country: ES (occurrence: ES)
  Receive Date: 20140203
  Receipt Date: 20140203
  Transmission Date: 20141002
  Serious: Yes (Death)
  Sender: FDA-Public Use
  Company Number: ES-ROCHE-1340858

PATIENT
  Age: 55 Year
  Sex: Male

DRUGS (3)
  1. PEGASYS [Suspect]
     Indication: CHRONIC HEPATITIS C
     Route: 058
     Dates: start: 20130628, end: 20131220
  2. RIBAVIRIN [Suspect]
     Indication: CHRONIC HEPATITIS C
     Route: 048
     Dates: start: 20130628, end: 20131227
  3. INCIVO [Concomitant]
     Route: 065
     Dates: start: 20130628, end: 20130920

REACTIONS (2)
  - Hypertensive crisis [Fatal]
  - Cerebral haematoma [Fatal]
